FAERS Safety Report 10245185 (Version 1)
Quarter: 2014Q2

REPORT INFORMATION
  Report Type: Spontaneous
  Country: US (occurrence: US)
  Receive Date: 20140618
  Receipt Date: 20140618
  Transmission Date: 20141212
  Serious: Yes (Other)
  Sender: FDA-Public Use
  Company Number: US-TEVA-488030USA

PATIENT
  Age: 55 Year
  Sex: Female

DRUGS (1)
  1. PARAGARD 380A [Suspect]
     Indication: CONTRACEPTION
     Route: 015
     Dates: start: 20040126, end: 20140310

REACTIONS (15)
  - Device breakage [Unknown]
  - Medical device complication [Unknown]
  - Embedded device [Unknown]
  - Haemorrhage [Unknown]
  - Impaired work ability [Unknown]
  - Anxiety [Unknown]
  - Insomnia [Unknown]
  - Vein collapse [Unknown]
  - Dysphagia [Unknown]
  - Oropharyngeal pain [Unknown]
  - Limb discomfort [Unknown]
  - Chest discomfort [Unknown]
  - Muscle spasms [Unknown]
  - Pain [Unknown]
  - Feeling abnormal [Unknown]
